FAERS Safety Report 9364536 (Version 1)
Quarter: 2013Q2

REPORT INFORMATION
  Report Type: Other
  Country: GB (occurrence: GB)
  Receive Date: 20130624
  Receipt Date: 20130624
  Transmission Date: 20140414
  Serious: Yes (Hospitalization)
  Sender: FDA-Public Use
  Company Number: GB-ACTAVIS-2013-11073

PATIENT
  Sex: Male

DRUGS (6)
  1. OXALIPLATIN (UNKNOWN) [Suspect]
     Indication: COLORECTAL CANCER
     Dosage: 260 MG, UNKNOWN
     Route: 042
     Dates: start: 20130501, end: 20130529
  2. AVASTIN /01555201/ [Suspect]
     Indication: COLORECTAL CANCER
     Dosage: 750 MG, UNK
     Route: 042
     Dates: start: 20130501, end: 20130529
  3. LOPERAMIDE [Concomitant]
     Indication: DIARRHOEA
     Dosage: 2 MG, UNK
     Route: 065
     Dates: start: 20130501
  4. METOCLOPRAMIDE [Concomitant]
     Indication: NAUSEA
     Dosage: UNK
     Route: 065
     Dates: start: 20130501
  5. BENZYDAMINE [Concomitant]
     Indication: MUCOSAL INFLAMMATION
     Dosage: 10 ML MILLILITRE(S)  DOSAGE(S)=4 INTERVAL= 1 DAY(S)
     Route: 065
     Dates: start: 20130501
  6. CAPECITABINE [Concomitant]
     Indication: COLORECTAL CANCER
     Dosage: 200 MG MILLIGRAM(S)  DOSAGE(S)=2 INTERVAL= 1 DAY(S)
     Route: 065
     Dates: start: 20130501, end: 20130529

REACTIONS (5)
  - Neurological symptom [Recovered/Resolved]
  - Syncope [Recovered/Resolved]
  - Loss of consciousness [Recovered/Resolved]
  - Vomiting [Recovered/Resolved]
  - Feeling cold [Recovered/Resolved]
